FAERS Safety Report 16418957 (Version 1)
Quarter: 2019Q2

REPORT INFORMATION
  Report Type: Spontaneous
  Country: US (occurrence: US)
  Receive Date: 20190612
  Receipt Date: 20190612
  Transmission Date: 20190711
  Serious: Yes (Other)
  Sender: FDA-Public Use
  Company Number: US-LUPIN PHARMACEUTICALS INC.-2019-03470

PATIENT
  Sex: Male

DRUGS (2)
  1. TOBRAMYCIN INHALATION SOLUTION USP, 300 MG/5 ML [Suspect]
     Active Substance: TOBRAMYCIN
     Indication: PRODUCT USED FOR UNKNOWN INDICATION
     Dosage: UNK
     Route: 065
     Dates: start: 201903
  2. TOBRAMYCIN INHALATION SOLUTION USP, 300 MG/5 ML [Suspect]
     Active Substance: TOBRAMYCIN
     Dosage: UNK
     Route: 065
     Dates: start: 201905

REACTIONS (1)
  - Atrial flutter [Unknown]

NARRATIVE: CASE EVENT DATE: 20190423
